FAERS Safety Report 4633591-6 (Version None)
Quarter: 2005Q2

REPORT INFORMATION
  Report Type: 
  Country: None (occurrence: None)
  Receive Date: 20050412
  Receipt Date: 20050412
  Transmission Date: 20051028
  Serious: Yes (Hospitalization)
  Sender: FDA-Public Use
  Company Number: None

PATIENT
  Age: 61 Year
  Sex: Male
  Weight: 64.2 kg

DRUGS (25)
  1. MORPHINE SULFATE [Suspect]
  2. LACTULOSE [Concomitant]
  3. GLIPIZIDE [Concomitant]
  4. INSULIN HUMAN REGULAR [Concomitant]
  5. ENOXAPARIN SODIUM [Concomitant]
  6. FOSINOPRIL [Concomitant]
  7. SPIRONOLACTONE [Concomitant]
  8. OMEPRAZOLE [Concomitant]
  9. NADOLOL [Concomitant]
  10. MULTI-VITAMINS [Concomitant]
  11. IPRATROPIUM/ALBUTEROL INHALER [Concomitant]
  12. FOLIC ACID [Concomitant]
  13. FUROSEMIDE [Concomitant]
  14. FLUNISOLIDE ORAL INHALER [Concomitant]
  15. ASPIRIN [Concomitant]
  16. KETOROLAC [Concomitant]
  17. FELODIPINE [Concomitant]
  18. FELODIPINE [Concomitant]
  19. SIMVASTATIN [Concomitant]
  20. CITALOPRAM HYDROBROMIDE [Concomitant]
  21. CITALOPRAM HYDROBROMIDE [Concomitant]
  22. THIAMINE [Concomitant]
  23. ACETAMINOPHEN [Concomitant]
  24. GABAPENTIN [Concomitant]
  25. CLOTRIMAZOLE [Concomitant]

REACTIONS (3)
  - HYPERCAPNIA [None]
  - LETHARGY [None]
  - RESPIRATORY DEPRESSION [None]
